FAERS Safety Report 21527521 (Version 1)
Quarter: 2022Q4

REPORT INFORMATION
  Report Type: Spontaneous
  Country: JP (occurrence: JP)
  Receive Date: 20221031
  Receipt Date: 20221031
  Transmission Date: 20230113
  Serious: Yes (Other)
  Sender: FDA-Public Use
  Company Number: JP-MLMSERVICE-20221018-3868753-1

PATIENT
  Age: 59 Year
  Sex: Male

DRUGS (4)
  1. ETOPOSIDE [Suspect]
     Active Substance: ETOPOSIDE
     Indication: Leukaemia basophilic
     Dosage: CUMULATIVE DOSE:100 MG/M2
  2. CYTARABINE [Suspect]
     Active Substance: CYTARABINE
     Indication: Leukaemia basophilic
     Dosage: DOSE AND CUMULATIVE DOSE:1 G/M2
  3. MITOXANTRONE [Suspect]
     Active Substance: MITOXANTRONE HYDROCHLORIDE
     Indication: Leukaemia basophilic
     Dosage: CUMULATIVE DOSE:8 MG/M2
  4. PREDNISOLONE [Concomitant]
     Active Substance: PREDNISOLONE
     Indication: Prophylaxis

REACTIONS (4)
  - Drug intolerance [Unknown]
  - Cognitive disorder [Unknown]
  - Tumour lysis syndrome [Unknown]
  - Inflammation [Unknown]
